FAERS Safety Report 18244168 (Version 2)
Quarter: 2020Q4

REPORT INFORMATION
  Report Type: Report from Study
  Country: JP (occurrence: JP)
  Receive Date: 20200909
  Receipt Date: 20201105
  Transmission Date: 20210113
  Serious: Yes (Hospitalization)
  Sender: FDA-Public Use
  Company Number: JP-BAXTER-2020BAX018329

PATIENT
  Age: 44 Year
  Sex: Female

DRUGS (16)
  1. LOXOPROFEN SODIUM HYDRATE [Concomitant]
     Active Substance: LOXOPROFEN SODIUM DIHYDRATE
     Indication: PRODUCT USED FOR UNKNOWN INDICATION
     Route: 065
     Dates: start: 20191228, end: 20200305
  2. PACLITAXEL. [Suspect]
     Active Substance: PACLITAXEL
     Dosage: LAST DOSE PRIOR TO SAES
     Route: 042
     Dates: start: 20191213, end: 20191213
  3. PEGFILGRASTIM GENETICAL RECOMBINATION [Suspect]
     Active Substance: PEGFILGRASTIM
     Dosage: DOSAGE FORM: INJECTION SOLUTION CONCENTRATE, CYCLE 5 VISIT 2
     Route: 058
     Dates: start: 20200224, end: 20200224
  4. DOXIL [Suspect]
     Active Substance: DOXORUBICIN HYDROCHLORIDE
     Indication: TRIPLE NEGATIVE BREAST CANCER
     Dosage: FIRST CYCLE, DOSE: 60 MG/M2
     Route: 042
     Dates: start: 20191220, end: 20191220
  5. DOXIL [Suspect]
     Active Substance: DOXORUBICIN HYDROCHLORIDE
     Dosage: SECOND CYCLE, LAST DOSE PRIOR TO SAES
     Route: 042
     Dates: start: 20200107, end: 20200107
  6. ENDOXAN 1G [Suspect]
     Active Substance: CYCLOPHOSPHAMIDE
     Dosage: SECOND CYCLE, LAST DOSE PRIOR TO SAES
     Route: 042
     Dates: start: 20200107, end: 20200107
  7. ATEZOLIZUMAB GENETICAL RECOMBINATION [Suspect]
     Active Substance: ATEZOLIZUMAB
     Indication: TRIPLE NEGATIVE BREAST CANCER
     Dosage: FIRST CYCLE
     Route: 042
     Dates: start: 20190920, end: 20190920
  8. PEGFILGRASTIM GENETICAL RECOMBINATION [Suspect]
     Active Substance: PEGFILGRASTIM
     Dosage: DOSAGE FORM: INJECTION SOLUTION CONCENTRATE, CYCLE 5 VISIT 1
     Route: 058
     Dates: start: 20200210, end: 20200210
  9. CALONAL [Concomitant]
     Active Substance: ACETAMINOPHEN
     Indication: PRODUCT USED FOR UNKNOWN INDICATION
     Route: 065
     Dates: start: 20200120, end: 20200202
  10. ENDOXAN 1G [Suspect]
     Active Substance: CYCLOPHOSPHAMIDE
     Indication: TRIPLE NEGATIVE BREAST CANCER
     Dosage: FIRST CYCLE, DOSE: 600 MG/M2
     Route: 042
     Dates: start: 20191220, end: 20191220
  11. EPIRUBICIN HYDROCHLORIDE. [Concomitant]
     Active Substance: EPIRUBICIN HYDROCHLORIDE
     Indication: PRODUCT USED FOR UNKNOWN INDICATION
     Route: 042
  12. ADRIACIN [Concomitant]
     Active Substance: DOXORUBICIN HYDROCHLORIDE
     Indication: BREAST CANCER
     Route: 065
     Dates: start: 20200107
  13. PEGFILGRASTIM GENETICAL RECOMBINATION [Suspect]
     Active Substance: PEGFILGRASTIM
     Dosage: DOSAGE FORM: INJECTION SOLUTION CONCENTRATE, CYCLE 4 VISIT 2
     Route: 058
     Dates: start: 20200110, end: 20200110
  14. PEGFILGRASTIM GENETICAL RECOMBINATION [Suspect]
     Active Substance: PEGFILGRASTIM
     Indication: TRIPLE NEGATIVE BREAST CANCER
     Dosage: DOSAGE FORM: INJECTION SOLUTION CONCENTRATE, CYCLE 4 VISIT 1
     Route: 058
     Dates: start: 20191223, end: 20191223
  15. ATEZOLIZUMAB GENETICAL RECOMBINATION [Suspect]
     Active Substance: ATEZOLIZUMAB
     Dosage: SECOND CYCLE, LAST DOSE PRIOR TO SAES
     Route: 042
     Dates: start: 20200107, end: 20200107
  16. PACLITAXEL. [Suspect]
     Active Substance: PACLITAXEL
     Indication: TRIPLE NEGATIVE BREAST CANCER
     Dosage: FIRST CYCLE
     Route: 042
     Dates: start: 20190920, end: 20190920

REACTIONS (2)
  - Conjunctivitis [Recovered/Resolved]
  - Herpes zoster [Recovered/Resolved]

NARRATIVE: CASE EVENT DATE: 20200118
